FAERS Safety Report 9835933 (Version 2)
Quarter: 2014Q1

REPORT INFORMATION
  Report Type: Spontaneous
  Country: JP (occurrence: JP)
  Receive Date: 20140122
  Receipt Date: 20140221
  Transmission Date: 20141002
  Serious: Yes (Life-Threatening, Other)
  Sender: FDA-Public Use
  Company Number: JP-TAKEDA-2014TJP000719

PATIENT
  Age: 68 Year
  Sex: Male
  Weight: 73 kg

DRUGS (7)
  1. NESINA TABLETS 25MG [Suspect]
     Indication: TYPE 2 DIABETES MELLITUS
     Dosage: 25 MG, QD
     Route: 048
     Dates: end: 20140107
  2. NEXIUM                             /01479302/ [Concomitant]
     Indication: GASTROOESOPHAGEAL REFLUX DISEASE
     Dosage: 20 MG, QD
     Route: 048
     Dates: end: 20140113
  3. AMLODIPINE                         /00972402/ [Concomitant]
     Indication: HYPERTENSION
     Dosage: 2.5 MG, BID
     Route: 048
     Dates: end: 20140113
  4. OLMETEC [Concomitant]
     Indication: HYPERTENSION
     Dosage: 10 MG, BID
     Route: 048
     Dates: end: 20140113
  5. BAYASPIRIN [Concomitant]
     Indication: CEREBROVASCULAR ACCIDENT PROPHYLAXIS
     Dosage: 100 MG, QD
     Route: 048
     Dates: end: 20140107
  6. GLIMEPIRIDE [Concomitant]
     Indication: TYPE 2 DIABETES MELLITUS
     Dosage: 1 MG, BID
     Route: 048
     Dates: end: 20140107
  7. MEDET [Concomitant]
     Indication: TYPE 2 DIABETES MELLITUS
     Dosage: 250 MG, TID
     Route: 048
     Dates: end: 20140107

REACTIONS (1)
  - Pancreatic carcinoma [Unknown]
